FAERS Safety Report 7540454-5 (Version None)
Quarter: 2011Q2

REPORT INFORMATION
  Report Type: 
  Country: None (occurrence: None)
  Receive Date: 20110603
  Receipt Date: 20110518
  Transmission Date: 20111010
  Serious: Yes (Death, Life-Threatening, Other)
  Sender: FDA-Public Use
  Company Number: 2011MA006135

PATIENT
  Age: 37 Year
  Sex: Female

DRUGS (2)
  1. FEVERALL [Suspect]
     Dosage: 171 PG/ML; PO
     Route: 048
  2. PROPOXYPHENE HYDROCHLORIDE [Concomitant]

REACTIONS (8)
  - BLOOD PRESSURE INCREASED [None]
  - RESPIRATORY RATE INCREASED [None]
  - AGITATION [None]
  - OVERDOSE [None]
  - UNRESPONSIVE TO STIMULI [None]
  - BLOOD PRESSURE IMMEASURABLE [None]
  - HEART RATE INCREASED [None]
  - BRADYCARDIA [None]
